FAERS Safety Report 7977481 (Version 3)
Quarter: 2013Q4

REPORT INFORMATION
  Report Type: Spontaneous
  Country: US (occurrence: US)
  Receive Date: 20110607
  Receipt Date: 20131021
  Transmission Date: 20140711
  Serious: No
  Sender: FDA-Public Use
  Company Number: US-ASTRAZENECA-2011SE11461

PATIENT
  Age: 74 Year
  Sex: Female
  Weight: 81.6 kg

DRUGS (15)
  1. TOPROL XL [Suspect]
     Indication: ATRIAL FIBRILLATION
     Route: 048
     Dates: start: 2008, end: 201302
  2. TOPROL XL [Suspect]
     Indication: CARDIAC DISORDER
     Route: 048
     Dates: start: 2008, end: 201302
  3. TOPROL XL [Suspect]
     Indication: ATRIAL FIBRILLATION
     Dosage: TWICE A DAY
     Route: 048
  4. TOPROL XL [Suspect]
     Indication: CARDIAC DISORDER
     Dosage: TWICE A DAY
     Route: 048
  5. PRILOSEC [Suspect]
     Indication: GASTROOESOPHAGEAL REFLUX DISEASE
     Route: 048
     Dates: start: 2006
  6. PRILOSEC [Suspect]
     Indication: GASTROOESOPHAGEAL REFLUX DISEASE
     Dosage: 40 DAILY
     Route: 048
  7. PRILOSEC OTC [Suspect]
     Route: 048
  8. CRESTOR [Suspect]
     Indication: BLOOD CHOLESTEROL ABNORMAL
     Dosage: DAILY
     Route: 048
     Dates: start: 201309
  9. FUROSEMIDE [Concomitant]
     Indication: DYSPNOEA
     Route: 048
     Dates: start: 201310
  10. POTASSIUM [Concomitant]
     Indication: SUPPLEMENTATION THERAPY
     Dosage: DAILY
     Route: 048
     Dates: start: 201310
  11. VERAPAMIL [Concomitant]
     Indication: CARDIAC DISORDER
     Route: 048
     Dates: start: 201310
  12. DIGOXIN [Concomitant]
     Indication: CARDIAC DISORDER
     Route: 048
     Dates: start: 201310
  13. COUMADIN [Concomitant]
     Dosage: 5 MG X 5 DAYS DAILY
     Route: 048
     Dates: start: 201310
  14. COUMADIN [Concomitant]
     Dosage: 2.5 MG X 2 DAYS DAILY
     Route: 048
     Dates: start: 201310
  15. LIPITOR [Concomitant]

REACTIONS (9)
  - Drug hypersensitivity [Unknown]
  - Eructation [Unknown]
  - Osteoarthritis [Unknown]
  - Dyspnoea [Recovered/Resolved]
  - Atrial fibrillation [Recovered/Resolved with Sequelae]
  - Dyspepsia [Unknown]
  - Palpitations [Unknown]
  - Drug ineffective [Unknown]
  - Drug prescribing error [Unknown]
